FAERS Safety Report 24800376 (Version 1)
Quarter: 2025Q1

REPORT INFORMATION
  Report Type: Spontaneous
  Country: JP (occurrence: JP)
  Receive Date: 20250102
  Receipt Date: 20250102
  Transmission Date: 20250409
  Serious: Yes (Other)
  Sender: PFIZER
  Company Number: JP-PFIZER INC-PV202400168084

PATIENT
  Age: 87 Year
  Sex: Male

DRUGS (3)
  1. SPIRONOLACTONE [Suspect]
     Active Substance: SPIRONOLACTONE
     Indication: Pleural effusion
     Route: 048
  2. FUROSEMIDE [Suspect]
     Active Substance: FUROSEMIDE
     Indication: Pleural effusion
     Route: 048
  3. EMPAGLIFLOZIN [Concomitant]
     Active Substance: EMPAGLIFLOZIN

REACTIONS (10)
  - Emphysematous cystitis [Unknown]
  - Escherichia infection [Unknown]
  - Fall [Unknown]
  - Rib fracture [Unknown]
  - Urinary retention [Unknown]
  - Decreased appetite [Unknown]
  - Dizziness [Unknown]
  - Urine output decreased [Unknown]
  - Hyponatraemia [Unknown]
  - Off label use [Unknown]
